FAERS Safety Report 5609046-9 (Version None)
Quarter: 2008Q1

REPORT INFORMATION
  Report Type: 
  Country: None (occurrence: None)
  Receive Date: 20080131
  Receipt Date: 20080123
  Transmission Date: 20080703
  Serious: Yes (Other)
  Sender: FDA-Public Use
  Company Number: US-ROCHE-542685

PATIENT
  Age: 70 Year
  Sex: Female

DRUGS (5)
  1. BONIVA [Suspect]
     Indication: OSTEOPOROSIS PROPHYLAXIS
     Dosage: HAS BEEN TAKING BONIVA FOR ABOUT 2 YEARS
     Route: 048
     Dates: start: 20060101
  2. LEVOTHYROXINE SODIUM [Concomitant]
  3. ATENOLOL AND CHLORTHALIDONE [Concomitant]
  4. SIMVASTATIN [Concomitant]
  5. FELODIPINE EXTENDED RELEASE [Concomitant]
     Dosage: DRUG REPORTED AS FELODIPINE ER

REACTIONS (4)
  - EAR PAIN [None]
  - EYE PAIN [None]
  - INFECTION [None]
  - PAIN IN JAW [None]
